FAERS Safety Report 26183065 (Version 1)
Quarter: 2025Q4

REPORT INFORMATION
  Report Type: Spontaneous
  Country: US (occurrence: US)
  Receive Date: 20251221
  Receipt Date: 20251221
  Transmission Date: 20260118
  Serious: No
  Sender: ACCORD
  Company Number: US-Accord-505894

PATIENT
  Age: 59 Year
  Sex: Male
  Weight: 63.5 kg

DRUGS (1)
  1. UDENYCA [Suspect]
     Active Substance: PEGFILGRASTIM-CBQV
     Indication: White blood cell count decreased
     Dosage: STRENGTH: 6MG/0.6ML
     Dates: start: 20250914

REACTIONS (5)
  - Device adhesion issue [Unknown]
  - Device adhesion issue [Unknown]
  - No adverse event [Unknown]
  - Device issue [Unknown]
  - Device issue [Unknown]

NARRATIVE: CASE EVENT DATE: 20250914
